FAERS Safety Report 4517969-7 (Version None)
Quarter: 2004Q4

REPORT INFORMATION
  Report Type: 
  Country: None (occurrence: None)
  Receive Date: 20041130
  Receipt Date: 20041115
  Transmission Date: 20050328
  Serious: Yes (Other)
  Sender: FDA-Public Use
  Company Number: US_0411108067

PATIENT
  Sex: Female

DRUGS (1)
  1. EVISTA [Suspect]

REACTIONS (2)
  - ACTIVITIES OF DAILY LIVING IMPAIRED [None]
  - SURGERY [None]
